FAERS Safety Report 6163677-9 (Version None)
Quarter: 2009Q2

REPORT INFORMATION
  Report Type: 
  Country: None (occurrence: None)
  Receive Date: 20090422
  Receipt Date: 20090421
  Transmission Date: 20091009
  Serious: Yes (Death)
  Sender: FDA-Public Use
  Company Number: US-ASTRAZENECA-2009UW09953

PATIENT
  Age: 52 Year
  Sex: Male

DRUGS (4)
  1. SEROQUEL XR [Suspect]
     Route: 048
  2. XANAX [Concomitant]
  3. PERCOCET [Concomitant]
  4. METOPROLOL SUCCINATE EXTENDED RELEASE [Concomitant]
     Route: 048

REACTIONS (1)
  - DEATH [None]
